FAERS Safety Report 16410836 (Version 1)
Quarter: 2019Q2

REPORT INFORMATION
  Report Type: Spontaneous
  Country: US (occurrence: US)
  Receive Date: 20190610
  Receipt Date: 20190610
  Transmission Date: 20190711
  Serious: No
  Sender: FDA-Public Use
  Company Number: US-ABBVIE-18P-163-2474385-00

PATIENT
  Age: 69 Year
  Sex: Female

DRUGS (1)
  1. K-TAB [Suspect]
     Active Substance: POTASSIUM CHLORIDE
     Indication: HYPOKALAEMIA
     Route: 048
     Dates: start: 2017, end: 201808

REACTIONS (1)
  - Product residue present [Recovered/Resolved]

NARRATIVE: CASE EVENT DATE: 201808
